FAERS Safety Report 15425640 (Version 2)
Quarter: 2020Q2

REPORT INFORMATION
  Report Type: Spontaneous
  Country: NL (occurrence: NL)
  Receive Date: 20180925
  Receipt Date: 20200505
  Transmission Date: 20200713
  Serious: Yes (Hospitalization, Other)
  Sender: FDA-Public Use
  Company Number: PHHY2018NL104524

PATIENT
  Age: 45 Year
  Sex: Male

DRUGS (2)
  1. CYPROTERONE [Suspect]
     Active Substance: CYPROTERONE
     Indication: TRANSGENDER HORMONAL THERAPY
     Dosage: 10 MG, QD
     Route: 048
  2. ESTRADIOL. [Suspect]
     Active Substance: ESTRADIOL
     Indication: TRANSGENDER HORMONAL THERAPY
     Dosage: 20 MG
     Route: 059

REACTIONS (3)
  - Meningioma benign [Recovering/Resolving]
  - Visual impairment [Unknown]
  - Meningioma [Unknown]
